FAERS Safety Report 7777470-4 (Version None)
Quarter: 2011Q3

REPORT INFORMATION
  Report Type: 
  Country: None (occurrence: None)
  Receive Date: 20110922
  Receipt Date: 20110914
  Transmission Date: 20111222
  Serious: Yes (Other)
  Sender: FDA-Public Use
  Company Number: 2011SP043035

PATIENT
  Age: 16 Year
  Sex: Female
  Weight: 75.7507 kg

DRUGS (1)
  1. IMPLANON [Suspect]
     Indication: PRODUCT USED FOR UNKNOWN INDICATION
     Dosage: 1 DF;
     Dates: start: 20110408, end: 20110912

REACTIONS (3)
  - CONVULSION [None]
  - DEVICE ISSUE [None]
  - PAIN IN EXTREMITY [None]
